FAERS Safety Report 16292210 (Version 1)
Quarter: 2019Q2

REPORT INFORMATION
  Report Type: Spontaneous
  Country: US (occurrence: US)
  Receive Date: 20190509
  Receipt Date: 20190509
  Transmission Date: 20190711
  Serious: No
  Sender: FDA-Public Use
  Company Number: US-GLAXOSMITHKLINE-US2019078876

PATIENT
  Age: 71 Year
  Sex: Female

DRUGS (1)
  1. FLONASE [Suspect]
     Active Substance: FLUTICASONE PROPIONATE
     Indication: HYPERSENSITIVITY
     Dosage: ONE SPRAY PER NOSTRIL MORNING AND EVENING.
     Route: 045
     Dates: start: 201812, end: 201812

REACTIONS (2)
  - Epistaxis [Recovered/Resolved]
  - Inappropriate schedule of product administration [Unknown]
